FAERS Safety Report 13355769 (Version 1)
Quarter: 2017Q1

REPORT INFORMATION
  Report Type: Spontaneous
  Country: US (occurrence: US)
  Receive Date: 20170321
  Receipt Date: 20170321
  Transmission Date: 20170429
  Serious: No
  Sender: FDA-Public Use
  Company Number: US-BAUSCH-BL-2017-002047

PATIENT
  Sex: Male

DRUGS (3)
  1. RETIN-A [Suspect]
     Active Substance: TRETINOIN
     Indication: RASH
     Dosage: 1 APPLICATION
     Route: 065
  2. RETIN-A [Suspect]
     Active Substance: TRETINOIN
     Indication: PAPULE
  3. RETIN-A [Suspect]
     Active Substance: TRETINOIN
     Indication: PAPULE
     Dosage: 1 APPLICATION
     Route: 065

REACTIONS (4)
  - Hypersensitivity [Not Recovered/Not Resolved]
  - Off label use [Unknown]
  - Urticaria [Not Recovered/Not Resolved]
  - Drug ineffective for unapproved indication [Unknown]
